FAERS Safety Report 6204287-4 (Version None)
Quarter: 2009Q2

REPORT INFORMATION
  Report Type: 
  Country: None (occurrence: None)
  Receive Date: 20090527
  Receipt Date: 20090518
  Transmission Date: 20091009
  Serious: Yes (Hospitalization)
  Sender: FDA-Public Use
  Company Number: IL-PFIZER INC-2006125391

PATIENT
  Age: 54 Year

DRUGS (6)
  1. SILDENAFIL CITRATE [Suspect]
     Indication: PULMONARY HYPERTENSION
     Dosage: 20 MG, 3X/DAY
     Route: 048
     Dates: start: 20051108, end: 20061202
  2. WARFARIN SODIUM [Concomitant]
     Route: 048
     Dates: start: 20010101, end: 20061008
  3. FUROSEMIDE [Concomitant]
     Route: 048
     Dates: start: 20040201
  4. SPIRONOLACTONE [Concomitant]
     Route: 048
     Dates: start: 20040201
  5. EPOPROSTENOL [Concomitant]
     Route: 042
     Dates: start: 20050301
  6. HYDROXYZINE HYDROCHLORIDE [Concomitant]
     Route: 048
     Dates: start: 20051201

REACTIONS (1)
  - CATHETER RELATED INFECTION [None]
